FAERS Safety Report 6262526-8 (Version None)
Quarter: 2009Q3

REPORT INFORMATION
  Report Type: 
  Country: None (occurrence: None)
  Receive Date: 20090709
  Receipt Date: 20090630
  Transmission Date: 20100115
  Serious: No
  Sender: FDA-Public Use
  Company Number: US-ELI_LILLY_AND_COMPANY-US200906000240

PATIENT
  Sex: Female
  Weight: 56.825 kg

DRUGS (16)
  1. HUMULIN N [Suspect]
     Dosage: 7 U, EACH MORNING
     Dates: start: 19960101
  2. HUMULIN N [Suspect]
     Dosage: 3 U, EACH EVENING
     Dates: start: 19960101
  3. HUMALOG [Suspect]
     Dosage: UNK, UNK
     Dates: start: 19960101
  4. LIPITOR [Concomitant]
     Dosage: 40 MG, UNK
  5. LEVOTHYROXINE SODIUM [Concomitant]
     Dosage: 0.075 MG, UNK
  6. ASPIRIN [Concomitant]
     Dosage: 81 MG, UNK
  7. RANITIDINE [Concomitant]
     Dosage: 150 MG, UNK
  8. RAMIPRIL [Concomitant]
     Dosage: 1.25 MG, DAILY (1/D)
  9. FLUOXETINE [Concomitant]
     Dosage: UNK, DAILY (1/D)
  10. AMITRIPTYLINE HCL [Concomitant]
     Dosage: 30 MG, UNK
  11. DIAZEPAM [Concomitant]
     Dosage: 0.25 MG, UNK
  12. CALCIUM + VITAMIN D [Concomitant]
     Dosage: 600 MG, UNK
  13. PANTOPRAZOLE SODIUM [Concomitant]
     Dosage: 40 MG, UNK
  14. ESTER-C [Concomitant]
     Dosage: 500 MG, UNK
  15. VITAMIN B COMPLEX CAP [Concomitant]
     Dosage: 250 MG, UNK
  16. FOSAMAX [Concomitant]
     Dosage: 70 MG, WEEKLY (1/W)

REACTIONS (3)
  - BLOOD GLUCOSE INCREASED [None]
  - DRUG INEFFECTIVE [None]
  - HYPOTHYROIDISM [None]
